FAERS Safety Report 6015528-0 (Version None)
Quarter: 2008Q4

REPORT INFORMATION
  Report Type: 
  Country: None (occurrence: None)
  Receive Date: 20081219
  Receipt Date: 20081219
  Transmission Date: 20090506
  Serious: Yes (Hospitalization)
  Sender: FDA-Public Use
  Company Number: None

PATIENT
  Age: 80 Year
  Sex: Male

DRUGS (1)
  1. GALANTAMINE HYDROBROMIDE [Suspect]
     Indication: DEMENTIA
     Dosage: 8 MG BID PO
     Route: 048
     Dates: start: 20081108, end: 20081208

REACTIONS (6)
  - AGGRESSION [None]
  - AGITATION [None]
  - COMMUNICATION DISORDER [None]
  - CONFUSIONAL STATE [None]
  - DISORIENTATION [None]
  - SEXUAL DYSFUNCTION [None]
